FAERS Safety Report 9098731 (Version 3)
Quarter: 2013Q2

REPORT INFORMATION
  Report Type: Report from Study
  Country: US (occurrence: US)
  Receive Date: 20130213
  Receipt Date: 20130520
  Transmission Date: 20140414
  Serious: Yes (Hospitalization, Other)
  Sender: FDA-Public Use
  Company Number: US-PURDUE-USA-2013-0097726

PATIENT
  Age: 53 Year
  Sex: Male
  Weight: 122.45 kg

DRUGS (7)
  1. OXYCONTIN (NDA 22-272) [Suspect]
     Indication: BACK PAIN
     Dosage: 320 MG, BID
     Route: 048
  2. OXYCONTIN (NDA 22-272) [Suspect]
     Dosage: 240 MG, BID
  3. ROXICODONE [Concomitant]
     Indication: BREAKTHROUGH PAIN
     Dosage: 60 MG, Q4- 6H
  4. DILAUDID TABLET [Concomitant]
     Indication: INSOMNIA
     Dosage: UNK, BID
  5. DILAUDID TABLET [Concomitant]
     Indication: PAIN
  6. LISINOPRIL [Concomitant]
     Indication: PRODUCT USED FOR UNKNOWN INDICATION
     Dosage: 10 MG, DAILY
  7. XANAX [Concomitant]
     Indication: ANXIETY
     Dosage: UNK, SEE TEXT

REACTIONS (6)
  - Knee arthroplasty [Recovered/Resolved]
  - Atrial fibrillation [Unknown]
  - Arthralgia [Unknown]
  - Impaired work ability [Unknown]
  - Back pain [Unknown]
  - Anxiety [Unknown]
